FAERS Safety Report 9323322 (Version 2)
Quarter: 2013Q3

REPORT INFORMATION
  Report Type: Spontaneous
  Country: US (occurrence: US)
  Receive Date: 20130603
  Receipt Date: 20130906
  Transmission Date: 20140515
  Serious: Yes (Hospitalization)
  Sender: FDA-Public Use
  Company Number: US-B.I. PHARMACEUTICALS,INC./RIDGEFIELD-2013-BI-15144BP

PATIENT
  Age: 63 Year
  Sex: Male
  Weight: 124.48 kg

DRUGS (16)
  1. PRADAXA [Suspect]
     Indication: ANTICOAGULANT THERAPY
     Dosage: 300 MG
     Route: 048
     Dates: start: 20110301, end: 20111113
  2. PRADAXA [Suspect]
     Indication: ATRIAL FIBRILLATION
  3. LEVOTHYROXINE [Concomitant]
     Indication: HYPOTHYROIDISM
     Dosage: 300 MCG
     Route: 048
  4. TRAZADONE [Concomitant]
     Indication: SLEEP DISORDER
     Dosage: 150 MG
     Route: 048
     Dates: start: 2002
  5. LASIX [Concomitant]
     Dosage: 160 MG
     Route: 048
  6. DIOVAN [Concomitant]
     Indication: HYPERTENSION
     Route: 048
  7. VITAMIN B6 [Concomitant]
     Indication: VITAMIN SUPPLEMENTATION
  8. VITAMIN B12 [Concomitant]
     Indication: VITAMIN SUPPLEMENTATION
  9. SUPER B COMPLEX [Concomitant]
     Indication: VITAMIN SUPPLEMENTATION
  10. CALCIUM [Concomitant]
     Indication: VITAMIN SUPPLEMENTATION
  11. ZINC [Concomitant]
     Indication: VITAMIN SUPPLEMENTATION
  12. MAGNESIUM [Concomitant]
     Indication: VITAMIN SUPPLEMENTATION
  13. ALLOPURINOL [Concomitant]
     Indication: GOUT
  14. GLIPIZIDE [Concomitant]
     Indication: TYPE 2 DIABETES MELLITUS
     Dosage: 10 MG
     Route: 048
  15. FENOFIBRATE [Concomitant]
     Indication: BLOOD CHOLESTEROL INCREASED
     Dosage: 40 MG
  16. KLORCON [Concomitant]
     Indication: BLOOD POTASSIUM
     Dosage: 8 MEQ
     Route: 048

REACTIONS (3)
  - Lower gastrointestinal haemorrhage [Recovered/Resolved]
  - Coagulopathy [Unknown]
  - Renal failure acute [Unknown]
